FAERS Safety Report 24690066 (Version 1)
Quarter: 2024Q4

REPORT INFORMATION
  Report Type: Spontaneous
  Country: DE (occurrence: DE)
  Receive Date: 20241203
  Receipt Date: 20241203
  Transmission Date: 20250115
  Serious: Yes (Other)
  Sender: DR REDDYS
  Company Number: None

PATIENT
  Age: 48 Year
  Sex: Female
  Weight: 54 kg

DRUGS (1)
  1. IBANDRONIC ACID [Suspect]
     Active Substance: IBANDRONIC ACID
     Indication: Osteoporosis
     Dosage: IBANDRONIC ACID BETA 3 MG SOLUTION FOR INJECTION?3MG - ONGOING OTHER BATCHES SINCE 2012
     Route: 042
     Dates: start: 20120708, end: 20241124

REACTIONS (3)
  - Osteonecrosis of external auditory canal [Not Recovered/Not Resolved]
  - Anorectal discomfort [Recovered/Resolved]
  - Anal pruritus [Recovered/Resolved]

NARRATIVE: CASE EVENT DATE: 20120708
